FAERS Safety Report 8687208 (Version 2)
Quarter: 2012Q4

REPORT INFORMATION
  Report Type: 
  Country: JP (occurrence: JP)
  Receive Date: 20120727
  Receipt Date: 20121217
  Transmission Date: 20130627
  Serious: Yes (Death, Other)
  Sender: FDA-Public Use
  Company Number: PHHY2012JP064467

PATIENT
  Age: 82 Year
  Sex: Male

DRUGS (1)
  1. IMATINIB [Suspect]
     Indication: GASTROINTESTINAL STROMAL TUMOUR
     Dosage: 400 mg, once a day
     Route: 048

REACTIONS (3)
  - Gastrointestinal stromal tumour [Fatal]
  - Plasmacytoma [Unknown]
  - Second primary malignancy [Unknown]
